FAERS Safety Report 8618922-4 (Version None)
Quarter: 2012Q3

REPORT INFORMATION
  Report Type: 
  Country: None (occurrence: None)
  Receive Date: 20120816
  Receipt Date: 20120816
  Transmission Date: 20120928
  Serious: No
  Sender: FDA-Public Use
  Company Number: None

PATIENT
  Sex: Female
  Weight: 77 kg

DRUGS (1)
  1. INTRON A [Suspect]
     Dosage: 25 MU
     Dates: end: 20120316

REACTIONS (1)
  - MUSCLE DISORDER [None]
